FAERS Safety Report 10646659 (Version 1)
Quarter: 2014Q4

REPORT INFORMATION
  Report Type: Spontaneous
  Country: FR (occurrence: FR)
  Receive Date: 20141211
  Receipt Date: 20141211
  Transmission Date: 20150529
  Serious: Yes (Hospitalization)
  Sender: FDA-Public Use
  Company Number: FR-PFIZER INC-2014333307

PATIENT
  Age: 7 Year
  Sex: Female
  Weight: 24 kg

DRUGS (3)
  1. ADVIL [Suspect]
     Active Substance: IBUPROFEN
     Dosage: 200 MG, UNK
     Route: 048
     Dates: end: 20141014
  2. DOLIPRANE [Concomitant]
     Active Substance: ACETAMINOPHEN
     Dosage: 1DF FOR 24 KG
     Route: 048
     Dates: start: 20141014, end: 20141014
  3. KALINOX [Suspect]
     Active Substance: NITROUS OXIDE
     Indication: BLOOD TEST
     Dosage: UNK
     Route: 045
     Dates: start: 20141014, end: 20141014

REACTIONS (7)
  - Vomiting [Unknown]
  - Bronchospasm [Recovered/Resolved]
  - Hypersensitivity [Unknown]
  - Abdominal pain [Unknown]
  - Pyrexia [Unknown]
  - Diarrhoea [Unknown]
  - Urticaria [Recovered/Resolved]

NARRATIVE: CASE EVENT DATE: 201410
